FAERS Safety Report 5008400-6 (Version None)
Quarter: 2006Q1

REPORT INFORMATION
  Report Type: 
  Country: None (occurrence: None)
  Receive Date: 20060331
  Receipt Date: 20050930
  Transmission Date: 20060701
  Serious: Yes (Hospitalization)
  Sender: FDA-Public Use
  Company Number: US152641

PATIENT
  Age: 49 Year
  Sex: Female

DRUGS (4)
  1. NEULASTA [Suspect]
     Indication: CHEMOTHERAPY
     Dosage: 6 MG, 1 IN 3 WEEKS
     Dates: start: 20050615, end: 20050907
  2. SIMVASTATIN [Concomitant]
  3. VENLAFAXINE HCL [Concomitant]
  4. DOCETAXEL [Concomitant]

REACTIONS (1)
  - BONE PAIN [None]
